FAERS Safety Report 9819500 (Version 1)
Quarter: 2014Q1

REPORT INFORMATION
  Report Type: Spontaneous
  Country: FR (occurrence: None)
  Receive Date: 20140113
  Receipt Date: 20140113
  Transmission Date: 20141002
  Serious: Yes (Hospitalization)
  Sender: FDA-Public Use
  Company Number: 2112866

PATIENT
  Age: 51 Year
  Sex: Male

DRUGS (3)
  1. ATRACURIUM BESILATE [Suspect]
     Indication: SURGERY
     Route: 042
     Dates: start: 20130412, end: 20130412
  2. (PROPOFOL) [Suspect]
     Indication: SURGERY
     Route: 042
     Dates: start: 20130412, end: 20130412
  3. SUFENTANIL [Suspect]
     Indication: SURGERY
     Route: 042
     Dates: start: 20130412, end: 20130412

REACTIONS (4)
  - Hypotension [None]
  - Tachycardia [None]
  - Generalised erythema [None]
  - Shock [None]
